FAERS Safety Report 7251843 (Version 5)
Quarter: 2017Q4

REPORT INFORMATION
  Report Type: Spontaneous
  Country: JP (occurrence: JP)
  Receive Date: 20100121
  Receipt Date: 20171102
  Transmission Date: 20180321
  Serious: Yes (Life-Threatening, Hospitalization, Other)
  Sender: FDA-Public Use
  Company Number: PHHY2010JP01871

PATIENT
  Age: 31 Year
  Sex: Male
  Weight: 73 kg

DRUGS (2)
  1. NEORAL [Suspect]
     Active Substance: CYCLOSPORINE
     Dosage: 150 MG, BID
     Route: 048
     Dates: start: 20071212, end: 20091228
  2. NEORAL [Suspect]
     Active Substance: CYCLOSPORINE
     Indication: PSORIASIS
     Dosage: 300 MG, UNK
     Route: 048

REACTIONS (18)
  - Arteriosclerotic retinopathy [Recovering/Resolving]
  - Renal failure [Unknown]
  - Retinal detachment [Recovering/Resolving]
  - Vision blurred [Recovering/Resolving]
  - Blindness [Recovering/Resolving]
  - Nasopharyngitis [Unknown]
  - Acute kidney injury [Recovered/Resolved with Sequelae]
  - Retinopathy hypertensive [Recovering/Resolving]
  - White blood cell count increased [Recovered/Resolved]
  - Malignant hypertension [Recovering/Resolving]
  - Visual impairment [Recovering/Resolving]
  - Chronic kidney disease [Unknown]
  - Retinal exudates [Recovering/Resolving]
  - Disease progression [Unknown]
  - Blood bilirubin increased [Not Recovered/Not Resolved]
  - Papilloedema [Recovering/Resolving]
  - Retinal haemorrhage [Recovering/Resolving]
  - General physical health deterioration [Unknown]

NARRATIVE: CASE EVENT DATE: 20100106
